FAERS Safety Report 11087068 (Version 1)
Quarter: 2015Q2

REPORT INFORMATION
  Report Type: Spontaneous
  Country: US (occurrence: US)
  Receive Date: 20150504
  Receipt Date: 20150504
  Transmission Date: 20150821
  Serious: Yes (Hospitalization, Other)
  Sender: FDA-Public Use
  Company Number: US-APOTEX-2015AP008492

PATIENT
  Sex: Female

DRUGS (1)
  1. FENTANYL TRANSDERMAL SYSTEM [Suspect]
     Active Substance: FENTANYL
     Indication: PAIN
     Dosage: UNK
     Route: 062

REACTIONS (6)
  - Drug withdrawal convulsions [Recovered/Resolved]
  - Intentional overdose [Unknown]
  - Drug ineffective [Unknown]
  - Breakthrough pain [Unknown]
  - Product substitution issue [Unknown]
  - Intentional product misuse [Unknown]
